FAERS Safety Report 8618871 (Version 3)
Quarter: 2013Q2

REPORT INFORMATION
  Report Type: Spontaneous
  Country: US (occurrence: US)
  Receive Date: 20120618
  Receipt Date: 20130510
  Transmission Date: 20140414
  Serious: No
  Sender: FDA-Public Use
  Company Number: US-PFIZER INC-2012144456

PATIENT
  Age: 55 Year
  Sex: Male
  Weight: 102 kg

DRUGS (19)
  1. CHANTIX [Suspect]
     Indication: SMOKING CESSATION THERAPY
     Dosage: 0.5 MG, DAILY
     Route: 048
     Dates: start: 20120610, end: 2012
  2. CHANTIX [Suspect]
     Dosage: UNK, 2X/DAY
     Route: 048
     Dates: start: 2012, end: 2012
  3. CHANTIX [Suspect]
     Dosage: UNK, DAILY
     Route: 048
     Dates: start: 2012
  4. AMLODIPINE BESILATE [Suspect]
     Indication: HYPERTENSION
     Dosage: 10 MG, DAILY
     Dates: start: 201111
  5. MORPHINE SULFATE [Suspect]
     Indication: PAIN
     Dosage: 100MG TWO TIMES A DAY WITH 30MG DAILY
  6. FENTANYL [Suspect]
     Indication: PAIN
     Dosage: 100 UG TWO PATCH EVERY TWO DAYS
     Route: 062
  7. AMBIEN [Suspect]
     Indication: SLEEP DISORDER
     Dosage: UNK
  8. VALIUM [Concomitant]
     Indication: ANXIETY
     Dosage: 5 MG, DAILY AT NIGHT
  9. VALIUM [Concomitant]
     Indication: BACK DISORDER
  10. LISINOPRIL [Concomitant]
     Indication: HYPERTENSION
     Dosage: 20 MG, DAILY IN MORNING
  11. TAMSULOSIN HYDROCHLORIDE [Concomitant]
     Indication: DYSURIA
     Dosage: 0.4 MG, DAILY AT NIGHT
  12. LORTAB [Concomitant]
     Indication: ARTHRALGIA
     Dosage: 10/325, 3X/DAY (1/2 TAB), AS NEEDED
  13. GLUCOPHAGE [Concomitant]
     Indication: DIABETES MELLITUS
     Dosage: 500 MG (1/4 TAB AM, 1/2 TAB PM)
  14. FLEXERIL [Concomitant]
     Dosage: 10 MG, 3X/DAY
  15. CRESTOR [Concomitant]
     Dosage: 20 (UNITS NOT PROVIDED) AT BEDTIME
  16. PRAVACHOL [Concomitant]
     Dosage: 40 (UNITS NOT PROVIDED) AT BEDTIME
  17. HCTZ [Concomitant]
     Dosage: 25 (UNITS NOT PROVIDED) EVERY MORNING
  18. SIMVASTATIN [Concomitant]
     Dosage: UNK, 20 (UNITS NOT PROVIDED)
  19. ZETIA [Concomitant]
     Dosage: UNK,

REACTIONS (7)
  - Tinnitus [Unknown]
  - Asthenia [Unknown]
  - Poor quality sleep [Unknown]
  - Blood pressure increased [Unknown]
  - Somnolence [Unknown]
  - Drug ineffective [Unknown]
  - Fatigue [Unknown]
